FAERS Safety Report 8139611-9 (Version None)
Quarter: 2012Q1

REPORT INFORMATION
  Report Type: 
  Country: None (occurrence: None)
  Receive Date: 20120215
  Receipt Date: 20120207
  Transmission Date: 20120608
  Serious: Yes (Other)
  Sender: FDA-Public Use
  Company Number: PHHY2011CA114766

PATIENT
  Sex: Male

DRUGS (3)
  1. AFINITOR [Suspect]
     Dosage: 5 MG, QOD
     Route: 048
     Dates: start: 20110920, end: 20120124
  2. AFINITOR [Suspect]
     Indication: NEUROENDOCRINE TUMOUR
     Dosage: 5 MG, QD
     Route: 048
     Dates: start: 20110605, end: 20110701
  3. SANDOSTATIN LAR [Suspect]
     Indication: NEUROENDOCRINE TUMOUR
     Dosage: 30 MG, EVERY 4 WEEKS
     Route: 030
     Dates: start: 20070815

REACTIONS (5)
  - BLOOD COUNT ABNORMAL [None]
  - JOINT SWELLING [None]
  - PLATELET COUNT DECREASED [None]
  - PALPITATIONS [None]
  - MUSCULAR WEAKNESS [None]
